FAERS Safety Report 25203119 (Version 1)
Quarter: 2025Q2

REPORT INFORMATION
  Report Type: Spontaneous
  Country: ES (occurrence: ES)
  Receive Date: 20250416
  Receipt Date: 20250416
  Transmission Date: 20250716
  Serious: Yes (Other)
  Sender: AUROBINDO
  Company Number: ES-AEMPS-1657212

PATIENT
  Age: 44 Year
  Sex: Female

DRUGS (2)
  1. OXALIPLATIN [Interacting]
     Active Substance: OXALIPLATIN
     Indication: Malignant anorectal neoplasm
     Route: 042
     Dates: start: 20230315, end: 20230329
  2. FLUOROURACIL [Interacting]
     Active Substance: FLUOROURACIL
     Indication: Malignant anorectal neoplasm
     Route: 042
     Dates: start: 20230315, end: 20230329

REACTIONS (1)
  - Neuropathy peripheral [Not Recovered/Not Resolved]

NARRATIVE: CASE EVENT DATE: 20230412
